FAERS Safety Report 7803131-9 (Version None)
Quarter: 2011Q4

REPORT INFORMATION
  Report Type: 
  Country: None (occurrence: None)
  Receive Date: 20111007
  Receipt Date: 20110930
  Transmission Date: 20120403
  Serious: Yes (Hospitalization, Other)
  Sender: FDA-Public Use
  Company Number: PHEH2011US02564

PATIENT
  Sex: Female
  Weight: 57.143 kg

DRUGS (1)
  1. RECLAST [Suspect]
     Indication: OSTEOPOROSIS
     Dosage: 5 MG, UNK (ANUAL)
     Route: 042
     Dates: start: 20110818

REACTIONS (15)
  - PERICARDITIS [None]
  - BLOOD PHOSPHORUS DECREASED [None]
  - WHITE BLOOD CELL COUNT DECREASED [None]
  - BLOOD CALCIUM DECREASED [None]
  - NAUSEA [None]
  - DIARRHOEA [None]
  - BLOOD PRESSURE DECREASED [None]
  - SYNCOPE [None]
  - CHEST DISCOMFORT [None]
  - LOSS OF CONSCIOUSNESS [None]
  - ARTHRALGIA [None]
  - CARDIAC FAILURE CONGESTIVE [None]
  - MYALGIA [None]
  - HEADACHE [None]
  - ABDOMINAL PAIN [None]
